FAERS Safety Report 12385084 (Version 3)
Quarter: 2016Q3

REPORT INFORMATION
  Report Type: Report from Study
  Country: JP (occurrence: JP)
  Receive Date: 20160519
  Receipt Date: 20160727
  Transmission Date: 20161109
  Serious: Yes (Hospitalization, Other)
  Sender: FDA-Public Use
  Company Number: JP-TEVA-660848ISR

PATIENT
  Age: 79 Year
  Sex: Female
  Weight: 56.1 kg

DRUGS (10)
  1. SHAKUYAKUKANZOTO [Concomitant]
     Active Substance: HERBALS
     Dates: start: 20140528
  2. RASAGILINE [Suspect]
     Active Substance: RASAGILINE
     Indication: PARKINSON^S DISEASE
     Dosage: .5 MILLIGRAM DAILY; DBPC: RASAGILINE VS PLACEBO
     Route: 048
     Dates: start: 20160202, end: 20160509
  3. EXCEGRAN [Concomitant]
     Active Substance: ZONISAMIDE
     Dates: start: 20150808
  4. TRERIEF [Concomitant]
     Active Substance: ZONISAMIDE
     Dates: start: 20130910
  5. TAKECAB [Concomitant]
     Active Substance: VONOPRAZAN FUMURATE
     Indication: CHRONIC GASTRITIS
     Dosage: 20 MILLIGRAM DAILY;
     Dates: start: 20160412
  6. BENET [Concomitant]
     Active Substance: RISEDRONATE SODIUM
     Dates: start: 20140318
  7. MENESIT [Concomitant]
     Active Substance: CARBIDOPA\LEVODOPA
     Dates: start: 20120111
  8. ALOSENN [Concomitant]
     Active Substance: SENNA LEAF
     Dates: start: 20151109
  9. EDIROL [Concomitant]
     Active Substance: ELDECALCITOL
     Dates: start: 20140518
  10. VOLTAREN [Concomitant]
     Active Substance: DICLOFENAC SODIUM

REACTIONS (1)
  - Thyroid cancer [Recovering/Resolving]

NARRATIVE: CASE EVENT DATE: 20160425
